FAERS Safety Report 8015303-1 (Version None)
Quarter: 2011Q4

REPORT INFORMATION
  Report Type: 
  Country: None (occurrence: None)
  Receive Date: 20111223
  Receipt Date: 20111212
  Transmission Date: 20120403
  Serious: Yes (Death)
  Sender: FDA-Public Use
  Company Number: 2011MA017906

PATIENT
  Age: 62 Year
  Sex: Female

DRUGS (1)
  1. METFORMIN HYDROCHLORIDE [Suspect]
     Indication: DIABETES MELLITUS
     Dosage: 850 MG;TID;PO
     Route: 048

REACTIONS (2)
  - BLOOD CREATININE INCREASED [None]
  - LACTIC ACIDOSIS [None]
